FAERS Safety Report 25255522 (Version 1)
Quarter: 2025Q2

REPORT INFORMATION
  Report Type: Spontaneous
  Country: US (occurrence: US)
  Receive Date: 20250430
  Receipt Date: 20250430
  Transmission Date: 20250717
  Serious: Yes (Hospitalization)
  Sender: MYLAN
  Company Number: US-MYLANLABS-2025M1036731

PATIENT
  Age: 36 Year
  Sex: Female

DRUGS (20)
  1. ACETAMINOPHEN [Suspect]
     Active Substance: ACETAMINOPHEN
     Indication: Pain
  2. ACETAMINOPHEN [Suspect]
     Active Substance: ACETAMINOPHEN
     Route: 065
  3. ACETAMINOPHEN [Suspect]
     Active Substance: ACETAMINOPHEN
     Route: 065
  4. ACETAMINOPHEN [Suspect]
     Active Substance: ACETAMINOPHEN
  5. CELECOXIB [Suspect]
     Active Substance: CELECOXIB
     Indication: Pain
  6. CELECOXIB [Suspect]
     Active Substance: CELECOXIB
     Route: 065
  7. CELECOXIB [Suspect]
     Active Substance: CELECOXIB
     Route: 065
  8. CELECOXIB [Suspect]
     Active Substance: CELECOXIB
  9. PREGABALIN [Suspect]
     Active Substance: PREGABALIN
     Indication: Pain
  10. PREGABALIN [Suspect]
     Active Substance: PREGABALIN
     Route: 065
  11. PREGABALIN [Suspect]
     Active Substance: PREGABALIN
     Route: 065
  12. PREGABALIN [Suspect]
     Active Substance: PREGABALIN
  13. BACLOFEN [Suspect]
     Active Substance: BACLOFEN
     Indication: Pain
  14. BACLOFEN [Suspect]
     Active Substance: BACLOFEN
     Route: 065
  15. BACLOFEN [Suspect]
     Active Substance: BACLOFEN
     Route: 065
  16. BACLOFEN [Suspect]
     Active Substance: BACLOFEN
  17. DULOXETINE [Suspect]
     Active Substance: DULOXETINE
     Indication: Pain
  18. DULOXETINE [Suspect]
     Active Substance: DULOXETINE
     Route: 065
  19. DULOXETINE [Suspect]
     Active Substance: DULOXETINE
     Route: 065
  20. DULOXETINE [Suspect]
     Active Substance: DULOXETINE

REACTIONS (1)
  - Treatment failure [Unknown]
